FAERS Safety Report 19163636 (Version 1)
Quarter: 2021Q2

REPORT INFORMATION
  Report Type: Spontaneous
  Country: AR (occurrence: AR)
  Receive Date: 20210421
  Receipt Date: 20210421
  Transmission Date: 20210717
  Serious: Yes (Other)
  Sender: FDA-Public Use
  Company Number: AR-ACCORD-222938

PATIENT
  Age: 57 Year
  Sex: Male

DRUGS (7)
  1. MYCOPHENOLIC ACID. [Interacting]
     Active Substance: MYCOPHENOLIC ACID
     Indication: IMMUNOSUPPRESSION
  2. TACROLIMUS. [Suspect]
     Active Substance: TACROLIMUS
     Indication: IMMUNOSUPPRESSION
     Dosage: CONTINUED WITH 2 MG/DAY
  3. BASILIXIMAB [Interacting]
     Active Substance: BASILIXIMAB
     Indication: IMMUNOSUPPRESSION
  4. ACENOCOUMAROL [Concomitant]
     Active Substance: ACENOCOUMAROL
     Indication: PORTAL VEIN THROMBOSIS
  5. PREDNISONE. [Interacting]
     Active Substance: PREDNISONE
     Indication: IMMUNOSUPPRESSION
  6. DARUNAVIR/COBICISTAT [Interacting]
     Active Substance: COBICISTAT\DARUNAVIR ETHANOLATE
     Indication: ANTIRETROVIRAL THERAPY
     Dosage: 800/150 MG QD
  7. DOLUTEGRAVIR [Interacting]
     Active Substance: DOLUTEGRAVIR
     Indication: ANTIRETROVIRAL THERAPY

REACTIONS (3)
  - Renal impairment [Unknown]
  - Drug interaction [Unknown]
  - Blood creatinine increased [Unknown]
